FAERS Safety Report 6668185-4 (Version None)
Quarter: 2010Q2

REPORT INFORMATION
  Report Type: 
  Country: None (occurrence: None)
  Receive Date: 20100405
  Receipt Date: 20100405
  Transmission Date: 20101027
  Serious: No
  Sender: FDA-Public Use
  Company Number: None

PATIENT
  Age: 18 Year
  Sex: Male
  Weight: 83.9154 kg

DRUGS (1)
  1. ZICAM NA MATRIX INITIATIVES [Suspect]
     Indication: NASOPHARYNGITIS
     Dates: start: 20030101, end: 20051001

REACTIONS (3)
  - BURNING SENSATION [None]
  - HYPOSMIA [None]
  - PRODUCT QUALITY ISSUE [None]
